FAERS Safety Report 5713026-2 (Version None)
Quarter: 2008Q2

REPORT INFORMATION
  Report Type: 
  Country: None (occurrence: None)
  Receive Date: 20080422
  Receipt Date: 20080418
  Transmission Date: 20081010
  Serious: Yes (Other)
  Sender: FDA-Public Use
  Company Number: US-ASTRAZENECA-2008UW06637

PATIENT
  Age: 67 Year
  Sex: Female
  Weight: 90.7 kg

DRUGS (7)
  1. CRESTOR [Suspect]
     Indication: BLOOD CHOLESTEROL INCREASED
     Route: 048
     Dates: start: 20030101
  2. NEXIUM [Suspect]
     Route: 048
  3. INSULIN [Concomitant]
  4. NEXIUM [Concomitant]
     Route: 048
  5. AROMASIN [Concomitant]
  6. LISINOPRIL [Concomitant]
     Route: 048
  7. DYAZIDE [Concomitant]

REACTIONS (3)
  - GAIT DISTURBANCE [None]
  - MUSCULAR WEAKNESS [None]
  - MYALGIA [None]
